FAERS Safety Report 8479215-1 (Version None)
Quarter: 2012Q2

REPORT INFORMATION
  Report Type: 
  Country: None (occurrence: None)
  Receive Date: 20120629
  Receipt Date: 20120622
  Transmission Date: 20120825
  Serious: Yes (Hospitalization)
  Sender: FDA-Public Use
  Company Number: IT-SP-2012-06346

PATIENT
  Sex: Male

DRUGS (9)
  1. TERAZOSIN HCL [Concomitant]
     Route: 048
  2. PROSCAR [Concomitant]
     Route: 048
  3. TICLID [Concomitant]
     Route: 048
  4. LOPRESSOR [Concomitant]
     Route: 048
  5. IMMUCYST [Suspect]
     Indication: BLADDER CANCER
     Route: 043
     Dates: start: 20110630, end: 20120209
  6. LEVOTHYROXINE SODIUM [Concomitant]
     Route: 048
  7. ATORVASTATIN CALCIUM [Concomitant]
     Route: 048
  8. LASIX [Concomitant]
     Route: 048
  9. IRBESARTAN [Concomitant]
     Route: 048

REACTIONS (4)
  - BONE MARROW FAILURE [None]
  - PANCYTOPENIA [None]
  - PYREXIA [None]
  - MYCOBACTERIUM TUBERCULOSIS COMPLEX TEST POSITIVE [None]
